FAERS Safety Report 19935645 (Version 1)
Quarter: 2021Q4

REPORT INFORMATION
  Report Type: Spontaneous
  Country: IT (occurrence: IT)
  Receive Date: 20211009
  Receipt Date: 20211009
  Transmission Date: 20220303
  Serious: Yes (Other)
  Sender: FDA-Public Use
  Company Number: IT-ABBVIE-21K-083-4112228-00

PATIENT
  Age: 6 Year
  Sex: Male
  Weight: 32 kg

DRUGS (2)
  1. VALPROATE SODIUM [Suspect]
     Active Substance: VALPROATE SODIUM
     Indication: Partial seizures
     Route: 048
     Dates: start: 20140805, end: 20190115
  2. VALPROATE SODIUM [Suspect]
     Active Substance: VALPROATE SODIUM
     Route: 048

REACTIONS (5)
  - Weight increased [Not Recovered/Not Resolved]
  - Behaviour disorder [Not Recovered/Not Resolved]
  - Irritability [Not Recovered/Not Resolved]
  - Aggression [Not Recovered/Not Resolved]
  - Personal relationship issue [Not Recovered/Not Resolved]

NARRATIVE: CASE EVENT DATE: 20181109
